FAERS Safety Report 13065095 (Version 1)
Quarter: 2016Q4

REPORT INFORMATION
  Report Type: Spontaneous
  Country: IN (occurrence: IN)
  Receive Date: 20161227
  Receipt Date: 20161227
  Transmission Date: 20170207
  Serious: Yes (Other)
  Sender: FDA-Public Use
  Company Number: ALCN2016IN008987

PATIENT
  Age: 20 Year
  Sex: Male

DRUGS (3)
  1. FML [Suspect]
     Active Substance: FLUOROMETHOLONE
     Indication: POSTOPERATIVE CARE
     Dosage: UNK
     Route: 047
  2. VIGAMOX [Suspect]
     Active Substance: MOXIFLOXACIN HYDROCHLORIDE
     Indication: POSTOPERATIVE CARE
     Dosage: UNK
     Route: 047
  3. CARBOXYMETHYLCELLULOSE SODIUM. [Suspect]
     Active Substance: CARBOXYMETHYLCELLULOSE SODIUM
     Indication: POSTOPERATIVE CARE
     Dosage: UNK
     Route: 047

REACTIONS (6)
  - Corneal opacity [Recovered/Resolved]
  - Corneal disorder [Recovered/Resolved]
  - Product use issue [Unknown]
  - Visual acuity reduced [Recovered/Resolved]
  - Corneal flap complication [Recovered/Resolved]
  - Corneal thickening [Recovered/Resolved]
